FAERS Safety Report 16966091 (Version 3)
Quarter: 2020Q1

REPORT INFORMATION
  Report Type: Spontaneous
  Country: US (occurrence: US)
  Receive Date: 20191028
  Receipt Date: 20200220
  Transmission Date: 20200409
  Serious: Yes (Hospitalization, Other)
  Sender: FDA-Public Use
  Company Number: US-PFIZER INC-2019463614

PATIENT
  Age: 60 Year
  Sex: Female

DRUGS (10)
  1. LYRICA [Suspect]
     Active Substance: PREGABALIN
     Indication: FIBROMYALGIA
     Dosage: 150 MG, 3X/DAY
     Route: 048
     Dates: start: 2010
  2. TOPIRAMATE. [Concomitant]
     Active Substance: TOPIRAMATE
     Indication: HEADACHE
     Dosage: 50 MG, DAILY
     Dates: start: 201707
  3. CARVEDILOL. [Concomitant]
     Active Substance: CARVEDILOL
     Dosage: UNK [3.125]
     Dates: start: 201704
  4. ATORVASTATIN [Concomitant]
     Active Substance: ATORVASTATIN
     Dosage: 80 MG, UNK
     Dates: start: 201704
  5. LYRICA [Suspect]
     Active Substance: PREGABALIN
     Indication: NEURALGIA
  6. TELMISARTAN. [Concomitant]
     Active Substance: TELMISARTAN
     Dosage: 80 MG, UNK
     Dates: start: 201704
  7. NORTRIPTYLINE [Concomitant]
     Active Substance: NORTRIPTYLINE
     Indication: SLEEP DISORDER
     Dosage: UNK, 1X/DAY [25-75 MG AT BED TIME]
     Dates: start: 201907
  8. LYRICA [Suspect]
     Active Substance: PREGABALIN
     Indication: NEURITIS
  9. OXYCODONE [Concomitant]
     Active Substance: OXYCODONE
     Indication: BACK PAIN
     Dosage: 10 MG, 3X/DAY [EVERY 8 HOURS]
     Dates: start: 2010
  10. WARFARIN [Concomitant]
     Active Substance: WARFARIN
     Dosage: UNK
     Dates: start: 201707

REACTIONS (3)
  - Deep vein thrombosis [Unknown]
  - Phantom limb syndrome [Not Recovered/Not Resolved]
  - Poor peripheral circulation [Unknown]

NARRATIVE: CASE EVENT DATE: 20170328
